FAERS Safety Report 10332849 (Version 13)
Quarter: 2015Q2

REPORT INFORMATION
  Report Type: Spontaneous
  Country: US (occurrence: US)
  Receive Date: 20140722
  Receipt Date: 20150605
  Transmission Date: 20150821
  Serious: Yes (Life-Threatening, Congenital Anomaly, Other)
  Sender: FDA-Public Use
  Company Number: US-PFIZER INC-2014201293

PATIENT
  Sex: Female
  Weight: 3.04 kg

DRUGS (11)
  1. ZOLOFT [Suspect]
     Active Substance: SERTRALINE HYDROCHLORIDE
     Indication: ANXIETY
     Dosage: UNK
     Route: 064
     Dates: start: 2005
  2. AMOXICILLIN. [Concomitant]
     Active Substance: AMOXICILLIN
     Dosage: 875 MG, 2X/DAY
     Route: 064
     Dates: start: 20050209
  3. ZOLOFT [Suspect]
     Active Substance: SERTRALINE HYDROCHLORIDE
     Indication: DEPRESSION
     Dosage: 50 MG, 1X/DAY
     Route: 064
     Dates: start: 20050228
  4. MACROBID [Concomitant]
     Active Substance: NITROFURANTOIN\NITROFURANTOIN MONOHYDRATE
     Indication: URINARY TRACT INFECTION
     Dosage: UNK
     Route: 064
     Dates: start: 20050428
  5. CLONAZEPAM. [Concomitant]
     Active Substance: CLONAZEPAM
     Dosage: 0.5 MG (ONE-HALF OF 1MG TABLET), 2X/DAY
     Route: 064
     Dates: start: 20050127
  6. ZOLOFT [Suspect]
     Active Substance: SERTRALINE HYDROCHLORIDE
     Indication: PANIC ATTACK
     Dosage: 50 MG, DAILY
     Route: 064
     Dates: start: 20050704
  7. LEXAPRO [Concomitant]
     Active Substance: ESCITALOPRAM OXALATE
     Dosage: 10 MG, DAILY
     Route: 064
     Dates: start: 20050127
  8. LORTAB [Concomitant]
     Active Substance: ACETAMINOPHEN\HYDROCODONE BITARTRATE
     Indication: ENDOMETRIOSIS
     Dosage: UNK
     Route: 064
     Dates: start: 2004, end: 2006
  9. ZITHROMAX [Concomitant]
     Active Substance: AZITHROMYCIN DIHYDRATE
     Dosage: UNK, DAILY
     Route: 064
     Dates: start: 20050710
  10. PRENATAL VITAMINS [Concomitant]
     Active Substance: VITAMINS
     Dosage: UNK, DAILY
     Route: 064
  11. AMANTADINE [Concomitant]
     Active Substance: AMANTADINE
     Dosage: 100 MG, 2X/DAY
     Route: 064
     Dates: start: 20050209

REACTIONS (6)
  - CHARGE syndrome [Unknown]
  - Ventricular septal defect [Recovering/Resolving]
  - Maternal exposure during pregnancy [Unknown]
  - Patent ductus arteriosus [Recovering/Resolving]
  - Atrial septal defect [Recovering/Resolving]
  - Heart disease congenital [Unknown]

NARRATIVE: CASE EVENT DATE: 20051025
